FAERS Safety Report 18418637 (Version 1)
Quarter: 2020Q4

REPORT INFORMATION
  Report Type: Spontaneous
  Country: US (occurrence: US)
  Receive Date: 20201023
  Receipt Date: 20201023
  Transmission Date: 20210114
  Serious: Yes (Death, Other)
  Sender: FDA-Public Use
  Company Number: US-ALKEM LABORATORIES LIMITED-US-ALKEM-2020-06855

PATIENT
  Age: 40 Year
  Sex: Male

DRUGS (1)
  1. METFORMIN HYDROCHLORIDE. [Suspect]
     Active Substance: METFORMIN HYDROCHLORIDE
     Indication: DIABETES MELLITUS MANAGEMENT
     Dosage: UNK
     Route: 065

REACTIONS (7)
  - Anion gap [Unknown]
  - Respiratory depression [Unknown]
  - Toxicity to various agents [Fatal]
  - Depressed level of consciousness [Unknown]
  - Hypotension [Unknown]
  - Coma [Unknown]
  - Metabolic acidosis [Unknown]
